FAERS Safety Report 9842215 (Version 1)
Quarter: 2014Q1

REPORT INFORMATION
  Report Type: Spontaneous
  Country: BR (occurrence: BR)
  Receive Date: 20140124
  Receipt Date: 20140124
  Transmission Date: 20141002
  Serious: Yes (Other)
  Sender: FDA-Public Use
  Company Number: BR-GLAXOSMITHKLINE-A1057941A

PATIENT
  Sex: Male

DRUGS (1)
  1. SERETIDE DISKUS [Suspect]
     Indication: PRODUCT USED FOR UNKNOWN INDICATION
     Route: 065
     Dates: start: 201301

REACTIONS (2)
  - Glaucoma [Not Recovered/Not Resolved]
  - Surgery [Unknown]
